FAERS Safety Report 11124405 (Version 1)
Quarter: 2015Q2

REPORT INFORMATION
  Report Type: Spontaneous
  Country: US (occurrence: US)
  Receive Date: 20150520
  Receipt Date: 20150520
  Transmission Date: 20150821
  Serious: No
  Sender: FDA-Public Use
  Company Number: US-BIOGENIDEC-2015BI063325

PATIENT
  Age: 78 Year
  Sex: Female

DRUGS (1)
  1. AVONEX [Suspect]
     Active Substance: INTERFERON BETA-1A
     Indication: MULTIPLE SCLEROSIS
     Route: 030
     Dates: start: 20010227

REACTIONS (6)
  - Multiple sclerosis [Recovered/Resolved]
  - Drug dose omission [Recovered/Resolved]
  - Multiple sclerosis relapse [Recovered/Resolved]
  - Transient ischaemic attack [Recovered/Resolved]
  - Mobility decreased [Recovered/Resolved]
  - Dysstasia [Recovered/Resolved]

NARRATIVE: CASE EVENT DATE: 20150422
